FAERS Safety Report 10637851 (Version 1)
Quarter: 2014Q4

REPORT INFORMATION
  Report Type: Spontaneous
  Country: US (occurrence: None)
  Receive Date: 20141204
  Receipt Date: 20141204
  Transmission Date: 20150529
  Serious: Yes (Other)
  Sender: FDA-Public Use
  Company Number: None

PATIENT
  Age: 59 Year
  Sex: Male
  Weight: 105.8 kg

DRUGS (1)
  1. TECHNETIUM TC-99M MPI MDP [Suspect]
     Active Substance: TECHNETIUM TC-99M MEDRONATE
     Indication: CARDIAC STRESS TEST
     Dates: start: 20140702, end: 20140702

REACTIONS (2)
  - Anaphylactic reaction [None]
  - Burning sensation [None]

NARRATIVE: CASE EVENT DATE: 20140703
